FAERS Safety Report 25440395 (Version 3)
Quarter: 2025Q3

REPORT INFORMATION
  Report Type: Spontaneous
  Country: US (occurrence: US)
  Receive Date: 20250616
  Receipt Date: 20250714
  Transmission Date: 20251021
  Serious: Yes (Death, Hospitalization, Other)
  Sender: MYLAN
  Company Number: US-MYLANLABS-2025M1049321

PATIENT
  Sex: Male
  Weight: 77.09 kg

DRUGS (1)
  1. SILDENAFIL [Suspect]
     Active Substance: SILDENAFIL
     Indication: Product used for unknown indication

REACTIONS (12)
  - Death [Fatal]
  - Ill-defined disorder [Unknown]
  - Dyspnoea [Unknown]
  - Oxygen consumption increased [Unknown]
  - Fatigue [Unknown]
  - Fluid retention [Unknown]
  - Weight increased [Unknown]
  - Dyspnoea exertional [Unknown]
  - Cough [Unknown]
  - Diarrhoea [Recovered/Resolved]
  - Vision blurred [Recovered/Resolved]
  - Dizziness [Recovered/Resolved]

NARRATIVE: CASE EVENT DATE: 20250404
